FAERS Safety Report 14511597 (Version 1)
Quarter: 2018Q1

REPORT INFORMATION
  Report Type: Report from Study
  Country: BE (occurrence: BE)
  Receive Date: 20180209
  Receipt Date: 20180209
  Transmission Date: 20180509
  Serious: Yes (Hospitalization)
  Sender: FDA-Public Use
  Company Number: BE-CELLTRION INC.-2018BE017736

PATIENT

DRUGS (16)
  1. INFLIXIMAB (UNKNOWN) [Suspect]
     Active Substance: INFLIXIMAB
     Indication: CROHN^S DISEASE
     Dosage: UNK
     Route: 065
     Dates: start: 20180105, end: 20180105
  2. PARACETAMOL [Concomitant]
     Active Substance: ACETAMINOPHEN
  3. PANTOMED                           /00178901/ [Concomitant]
  4. TIBERAL [Suspect]
     Active Substance: ORNIDAZOLE
     Indication: PRODUCT USED FOR UNKNOWN INDICATION
     Route: 065
  5. LITICAN                            /00690801/ [Concomitant]
     Active Substance: ALIZAPRIDE
  6. ENTOCORT [Concomitant]
     Active Substance: BUDESONIDE
  7. DIANE (CYPROTERONE ACETATE\ETHINYL ESTRADIOL) [Concomitant]
     Active Substance: CYPROTERONE ACETATE\ETHINYL ESTRADIOL
  8. TAVANIC [Concomitant]
     Active Substance: LEVOFLOXACIN
  9. IMODIUM [Concomitant]
     Active Substance: LOPERAMIDE HYDROCHLORIDE
  10. TELEBRIX GASTRO [Concomitant]
  11. VEDOLIZUMAB [Suspect]
     Active Substance: VEDOLIZUMAB
     Indication: PRODUCT USED FOR UNKNOWN INDICATION
     Dosage: UNK
     Route: 042
     Dates: start: 20170726, end: 20171228
  12. CONTRAMAL [Concomitant]
     Active Substance: TRAMADOL HYDROCHLORIDE
  13. CLEXANE [Concomitant]
     Active Substance: ENOXAPARIN SODIUM
  14. VISIPAQUE [Concomitant]
     Active Substance: IODIXANOL
  15. MOTILIUM [Concomitant]
     Active Substance: DOMPERIDONE
  16. MIRTAZAPINE. [Concomitant]
     Active Substance: MIRTAZAPINE

REACTIONS (2)
  - Crohn^s disease [Recovered/Resolved]
  - Hepatic enzyme increased [Not Recovered/Not Resolved]

NARRATIVE: CASE EVENT DATE: 20180104
